FAERS Safety Report 23566880 (Version 1)
Quarter: 2024Q1

REPORT INFORMATION
  Report Type: Spontaneous
  Country: US (occurrence: US)
  Receive Date: 20240226
  Receipt Date: 20240226
  Transmission Date: 20240409
  Serious: No
  Sender: FDA-Public Use
  Company Number: US-AMNEAL PHARMACEUTICALS-2023-AMRX-02613

PATIENT
  Sex: Female
  Weight: 51.247 kg

DRUGS (1)
  1. RYTARY [Suspect]
     Active Substance: CARBIDOPA\LEVODOPA
     Indication: Parkinson^s disease
     Dosage: 48.75 MG-195 MG, 02 CAPSULES, 3 /DAY
     Route: 048

REACTIONS (4)
  - Sluggishness [Not Recovered/Not Resolved]
  - Therapeutic product effect variable [Unknown]
  - Drug ineffective [Unknown]
  - Hypoacusis [Unknown]
